FAERS Safety Report 4961690-8 (Version None)
Quarter: 2006Q2

REPORT INFORMATION
  Report Type: 
  Country: None (occurrence: None)
  Receive Date: 20060404
  Receipt Date: 20060320
  Transmission Date: 20061013
  Serious: Yes (Other)
  Sender: FDA-Public Use
  Company Number: DEWYE491521MAR06

PATIENT
  Age: 14 Year

DRUGS (1)
  1. ENBREL [Suspect]
     Indication: JUVENILE ARTHRITIS
     Dosage: UNKNOWN
     Route: 058

REACTIONS (1)
  - IRIDOCYCLITIS [None]
